FAERS Safety Report 8338282-6 (Version None)
Quarter: 2012Q2

REPORT INFORMATION
  Report Type: 
  Country: None (occurrence: None)
  Receive Date: 20120504
  Receipt Date: 20120502
  Transmission Date: 20120825
  Serious: Yes (Other)
  Sender: FDA-Public Use
  Company Number: PHHY2012AR025032

PATIENT
  Sex: Female

DRUGS (2)
  1. DIOVAN [Suspect]
     Indication: HYPERTENSION
     Dosage: 1 DF (160 MG VALSARTAN) DAILY
  2. DIURETICS [Concomitant]
     Dosage: UNK UKN, UNK

REACTIONS (2)
  - CATARACT [None]
  - HEPATITIS B [None]
